FAERS Safety Report 12200427 (Version 1)
Quarter: 2016Q1

REPORT INFORMATION
  Report Type: Other
  Country: DE (occurrence: DE)
  Receive Date: 20160322
  Receipt Date: 20160322
  Transmission Date: 20160526
  Serious: Yes (Other)
  Sender: FDA-Public Use
  Company Number: DE-MYLANLABS-2016M1011497

PATIENT

DRUGS (2)
  1. HALDOL [Suspect]
     Active Substance: HALOPERIDOL
     Indication: PSYCHOTIC DISORDER
     Dosage: 2 MG, QD (2 [MG/D ]/ DOSAGE BETWEEN 2 MG/D AND 1 MG/D)
     Route: 064
     Dates: start: 20150103, end: 20151008
  2. ZIPRASIDONE. [Suspect]
     Active Substance: ZIPRASIDONE
     Indication: PSYCHOTIC DISORDER
     Dosage: 80 MG, BID (160 [MG/D ]/ DOSAGE BETWEEN 160 MG/D AND 120 MG/D)
     Route: 064
     Dates: start: 20150103, end: 20151008

REACTIONS (4)
  - Small for dates baby [Recovered/Resolved]
  - Agitation neonatal [Recovered/Resolved]
  - Respiratory disorder neonatal [Recovered/Resolved]
  - Foetal exposure during pregnancy [Unknown]

NARRATIVE: CASE EVENT DATE: 20151008
